FAERS Safety Report 10369882 (Version 2)
Quarter: 2014Q3

REPORT INFORMATION
  Report Type: Report from Study
  Country: US (occurrence: US)
  Receive Date: 20140808
  Receipt Date: 20140808
  Transmission Date: 20150326
  Serious: Yes (Other)
  Sender: FDA-Public Use
  Company Number: US-ROCHE-1141044

PATIENT
  Sex: Female

DRUGS (1)
  1. TRASTUZUMAB [Suspect]
     Active Substance: TRASTUZUMAB
     Indication: BREAST CANCER
     Route: 065

REACTIONS (14)
  - Cardiomyopathy [Unknown]
  - Angina pectoris [Unknown]
  - Ventricular flutter [Unknown]
  - Cardiac failure [Unknown]
  - Acute myocardial infarction [Unknown]
  - Deep vein thrombosis [Unknown]
  - Ventricular fibrillation [Unknown]
  - Cerebrovascular accident [Unknown]
  - Atrial fibrillation [Unknown]
  - Embolism arterial [Unknown]
  - Cardiac arrest [Unknown]
  - Transient ischaemic attack [Unknown]
  - Pulmonary embolism [Unknown]
  - Acute coronary syndrome [Unknown]
